FAERS Safety Report 20789332 (Version 1)
Quarter: 2022Q2

REPORT INFORMATION
  Report Type: Spontaneous
  Country: US (occurrence: None)
  Receive Date: 20220504
  Receipt Date: 20220504
  Transmission Date: 20220721
  Serious: No
  Sender: FDA-Public Use
  Company Number: None

PATIENT
  Sex: Male

DRUGS (1)
  1. OCTREOTIDE [Suspect]
     Active Substance: OCTREOTIDE
     Indication: Small intestine carcinoma
     Dosage: 100MCG EVERY 8 HOURS PRN UNDER THE SKIN?
     Route: 058
     Dates: start: 20220128

REACTIONS (4)
  - Confusional state [None]
  - Dysarthria [None]
  - Pneumonia [None]
  - Gait disturbance [None]

NARRATIVE: CASE EVENT DATE: 20220401
